FAERS Safety Report 15446395 (Version 2)
Quarter: 2019Q1

REPORT INFORMATION
  Report Type: Spontaneous
  Country: US (occurrence: US)
  Receive Date: 20180928
  Receipt Date: 20190224
  Transmission Date: 20190417
  Serious: No
  Sender: FDA-Public Use
  Company Number: US-AMGEN-USASP2018074722

PATIENT
  Age: 65 Year
  Sex: Female

DRUGS (5)
  1. RALOXIFENE. [Concomitant]
     Active Substance: RALOXIFENE
  2. ROSUVASTATIN. [Concomitant]
     Active Substance: ROSUVASTATIN
  3. PROLIA [Suspect]
     Active Substance: DENOSUMAB
     Dosage: HALF DOSE
     Route: 065
     Dates: start: 20180425
  4. PROLIA [Suspect]
     Active Substance: DENOSUMAB
     Indication: OSTEOPOROSIS POSTMENOPAUSAL
     Dosage: 60 MG, Q6MO
     Route: 065
     Dates: start: 20180425
  5. ALENDRONATE [Concomitant]
     Active Substance: ALENDRONATE SODIUM

REACTIONS (13)
  - Dysuria [Unknown]
  - Nasopharyngitis [Unknown]
  - Anxiety [Unknown]
  - Tinnitus [Not Recovered/Not Resolved]
  - Hunger [Not Recovered/Not Resolved]
  - Breast disorder [Unknown]
  - Abdominal distension [Unknown]
  - Agitation [Unknown]
  - Nasal dryness [Unknown]
  - Swelling of eyelid [Unknown]
  - Menopausal symptoms [Unknown]
  - Feeling hot [Not Recovered/Not Resolved]
  - Viral infection [Unknown]

NARRATIVE: CASE EVENT DATE: 2018
